FAERS Safety Report 13315467 (Version 2)
Quarter: 2017Q2

REPORT INFORMATION
  Report Type: Spontaneous
  Country: US (occurrence: US)
  Receive Date: 20170308
  Receipt Date: 20170419
  Transmission Date: 20170830
  Serious: Yes (Other)
  Sender: FDA-Public Use
  Company Number: US-ASTRAZENECA-2017SE23002

PATIENT
  Age: 680 Month
  Sex: Male
  Weight: 55.8 kg

DRUGS (2)
  1. ALBUTEROL INHALER [Concomitant]
     Active Substance: ALBUTEROL
     Indication: PROPHYLAXIS
     Dosage: AS REQUIRED
     Route: 055
  2. PULMICORT FLEXHALER [Suspect]
     Active Substance: BUDESONIDE
     Indication: ASTHMA
     Route: 055
     Dates: start: 2015

REACTIONS (7)
  - Malaise [Recovered/Resolved]
  - Heart rate increased [Recovered/Resolved]
  - Neoplasm malignant [Unknown]
  - Nausea [Recovered/Resolved]
  - Eyelid oedema [Unknown]
  - Visual impairment [Unknown]
  - Device malfunction [Unknown]

NARRATIVE: CASE EVENT DATE: 2015
